FAERS Safety Report 7275606-5 (Version None)
Quarter: 2011Q1

REPORT INFORMATION
  Report Type: 
  Country: None (occurrence: None)
  Receive Date: 20110204
  Receipt Date: 20110124
  Transmission Date: 20110831
  Serious: Yes (Hospitalization)
  Sender: FDA-Public Use
  Company Number: FR-GENENTECH-306733

PATIENT
  Sex: Female

DRUGS (6)
  1. METHYLPREDNISOLONE [Concomitant]
     Indication: PRODUCT USED FOR UNKNOWN INDICATION
     Dosage: UNK
  2. CORTANCYL [Concomitant]
     Indication: PRODUCT USED FOR UNKNOWN INDICATION
     Dosage: 5 MG, QD
  3. MABTHERA [Suspect]
     Indication: WEGENER'S GRANULOMATOSIS
     Dosage: 375 MG/M2, 4/WEEK
     Route: 042
     Dates: start: 20080501
  4. MABTHERA [Suspect]
     Dosage: 500 MG, Q6M
     Route: 042
     Dates: start: 20090101, end: 20100706
  5. ZELITREX [Concomitant]
     Indication: KERATITIS HERPETIC
     Dosage: UNK
     Dates: start: 20100101
  6. CEFPODOXIME PROXETIL [Suspect]
     Indication: PRODUCT USED FOR UNKNOWN INDICATION
     Dosage: 2 DF, UNK
     Route: 048
     Dates: start: 20100811, end: 20100813

REACTIONS (1)
  - AGRANULOCYTOSIS [None]
